FAERS Safety Report 6673178-7 (Version None)
Quarter: 2010Q2

REPORT INFORMATION
  Report Type: 
  Country: None (occurrence: None)
  Receive Date: 20100408
  Receipt Date: 20100325
  Transmission Date: 20101027
  Serious: No
  Sender: FDA-Public Use
  Company Number: JP-BAYER-200911154BYL

PATIENT
  Age: 71 Year
  Sex: Male
  Weight: 55 kg

DRUGS (16)
  1. NEXAVAR [Suspect]
     Indication: RENAL CELL CARCINOMA
     Dosage: UNIT DOSE: 200 MG
     Route: 048
     Dates: start: 20080716, end: 20080810
  2. NEXAVAR [Suspect]
     Dosage: UNIT DOSE: 200 MG
     Route: 048
     Dates: start: 20080811, end: 20081027
  3. NEXAVAR [Suspect]
     Dosage: UNIT DOSE: 200 MG
     Route: 048
     Dates: start: 20081112, end: 20090410
  4. NEXAVAR [Suspect]
     Route: 048
     Dates: end: 20090507
  5. NEXAVAR [Suspect]
     Dosage: UNIT DOSE: 200 MG
     Route: 048
     Dates: start: 20090610
  6. MEVALOTIN [Concomitant]
     Dosage: TOTAL DAILY DOSE: 5 MG
     Route: 048
     Dates: start: 20080820
  7. BASEN OD [Concomitant]
     Dosage: TOTAL DAILY DOSE: 0.6 MG
     Route: 048
     Dates: start: 20080820
  8. NELBIS [Concomitant]
     Dosage: TOTAL DAILY DOSE: 500 MG
     Route: 048
     Dates: start: 20080820
  9. AMARYL [Concomitant]
     Dosage: TOTAL DAILY DOSE: 2 MG
     Route: 048
     Dates: start: 20080820
  10. URALYT [Concomitant]
     Dosage: TOTAL DAILY DOSE: 6 DF
     Route: 048
     Dates: start: 20080917
  11. BIOFERMIN R [Concomitant]
     Dosage: TOTAL DAILY DOSE: 3 DF
     Route: 048
     Dates: start: 20080917
  12. THEO-DUR [Concomitant]
     Dosage: TOTAL DAILY DOSE: 200 MG
     Route: 048
     Dates: start: 20080917
  13. BISOLVON [Concomitant]
     Dosage: TOTAL DAILY DOSE: 12 MG
     Route: 048
     Dates: start: 20080917
  14. GASMOTIN [Concomitant]
     Dosage: TOTAL DAILY DOSE: 15 MG
     Route: 048
     Dates: start: 20080917
  15. SOLANTAL [Concomitant]
     Route: 048
  16. MYONAL [Concomitant]
     Route: 048

REACTIONS (2)
  - MALAISE [None]
  - PALMAR-PLANTAR ERYTHRODYSAESTHESIA SYNDROME [None]
